FAERS Safety Report 10237224 (Version 3)
Quarter: 2014Q3

REPORT INFORMATION
  Report Type: Report from Study
  Country: DE (occurrence: DE)
  Receive Date: 20140613
  Receipt Date: 20140801
  Transmission Date: 20150326
  Serious: Yes (Life-Threatening, Hospitalization, Other)
  Sender: FDA-Public Use
  Company Number: DE-TEVA-477838USA

PATIENT
  Age: 81 Year
  Sex: Male

DRUGS (31)
  1. DOXORUBICIN [Suspect]
     Active Substance: DOXORUBICIN
     Dates: start: 201309, end: 201309
  2. REVLIMID [Suspect]
     Active Substance: LENALIDOMIDE
     Dates: start: 20130705, end: 20130807
  3. VELCADE [Suspect]
     Active Substance: BORTEZOMIB
     Indication: PLASMA CELL MYELOMA
     Dosage: DAY 1 AND 8
     Dates: start: 20121213, end: 20130131
  4. DOXORUBICIN [Suspect]
     Active Substance: DOXORUBICIN
     Dates: start: 201309, end: 20130924
  5. DEXAMETHASONE. [Suspect]
     Active Substance: DEXAMETHASONE
     Dates: start: 201309, end: 201309
  6. REVLIMID [Suspect]
     Active Substance: LENALIDOMIDE
     Dates: start: 20130321, end: 20130513
  7. DOXORUBICIN [Suspect]
     Active Substance: DOXORUBICIN
     Indication: PLASMA CELL MYELOMA
     Dates: start: 20130705, end: 20130807
  8. REVLIMID [Suspect]
     Active Substance: LENALIDOMIDE
     Indication: PLASMA CELL MYELOMA
     Dates: start: 20130209, end: 20130301
  9. VELCADE [Suspect]
     Active Substance: BORTEZOMIB
     Dosage: DAY 1 AND 8
     Dates: start: 201309, end: 201309
  10. BENDAMUSTINE HYDROCHLORIDE [Suspect]
     Active Substance: BENDAMUSTINE HYDROCHLORIDE
     Indication: PLASMA CELL MYELOMA
     Route: 042
     Dates: start: 20130514, end: 20130515
  11. BENDAMUSTINE HYDROCHLORIDE [Suspect]
     Active Substance: BENDAMUSTINE HYDROCHLORIDE
     Dates: start: 20130612
  12. DOXORUBICIN [Suspect]
     Active Substance: DOXORUBICIN
     Dates: start: 201308, end: 201309
  13. REVLIMID [Suspect]
     Active Substance: LENALIDOMIDE
     Dates: start: 20130312, end: 20130320
  14. REVLIMID [Suspect]
     Active Substance: LENALIDOMIDE
     Dates: start: 201309, end: 20130924
  15. DEXAMETHASONE. [Suspect]
     Active Substance: DEXAMETHASONE
     Dates: start: 20130321, end: 20130513
  16. DEXAMETHASONE. [Suspect]
     Active Substance: DEXAMETHASONE
     Dates: start: 201308, end: 201309
  17. DEXAMETHASONE. [Suspect]
     Active Substance: DEXAMETHASONE
     Dates: start: 201309, end: 20130924
  18. DEXAMETHASONE. [Suspect]
     Active Substance: DEXAMETHASONE
     Dates: start: 20131007, end: 20131014
  19. REVLIMID [Suspect]
     Active Substance: LENALIDOMIDE
     Dates: start: 201308, end: 201309
  20. VELCADE [Suspect]
     Active Substance: BORTEZOMIB
     Dosage: DAY 1 AND 8
     Dates: start: 20130705, end: 20130807
  21. CYCLOPHOSPHAMIDE. [Suspect]
     Active Substance: CYCLOPHOSPHAMIDE
     Indication: PLASMA CELL MYELOMA
     Dates: start: 20131007, end: 20131014
  22. GRANISETRON [Suspect]
     Active Substance: GRANISETRON
     Dates: start: 20130612
  23. VELCADE [Suspect]
     Active Substance: BORTEZOMIB
     Dosage: DAY 1 AND 8
     Dates: start: 201309, end: 20130924
  24. POMALIDOMIDE [Suspect]
     Active Substance: POMALIDOMIDE
     Indication: PLASMA CELL MYELOMA
     Dates: start: 20131007, end: 20131014
  25. REVLIMID [Suspect]
     Active Substance: LENALIDOMIDE
     Dates: start: 201309, end: 201309
  26. DEXAMETHASONE. [Suspect]
     Active Substance: DEXAMETHASONE
     Indication: PLASMA CELL MYELOMA
     Dates: start: 20121213, end: 20130131
  27. DEXAMETHASONE. [Suspect]
     Active Substance: DEXAMETHASONE
     Dates: start: 20130514, end: 20130515
  28. DEXAMETHASONE. [Suspect]
     Active Substance: DEXAMETHASONE
     Dates: start: 20130612
  29. DEXAMETHASONE. [Suspect]
     Active Substance: DEXAMETHASONE
     Dates: start: 20130705, end: 20130807
  30. GRANISETRON [Suspect]
     Active Substance: GRANISETRON
     Indication: PLASMA CELL MYELOMA
     Dates: start: 20130514, end: 20130515
  31. VELCADE [Suspect]
     Active Substance: BORTEZOMIB
     Dosage: DAY 1 AND 8
     Dates: start: 201308, end: 201309

REACTIONS (8)
  - Pancytopenia [Recovered/Resolved]
  - Cough [Recovered/Resolved]
  - Urinary tract infection [Recovered/Resolved]
  - Fatigue [Recovered/Resolved]
  - Haemolytic anaemia [Recovered/Resolved]
  - Vertigo [Recovered/Resolved]
  - Thrombocytopenia [Recovered/Resolved]
  - Petechiae [Recovered/Resolved]

NARRATIVE: CASE EVENT DATE: 20130813
